APPROVED DRUG PRODUCT: LOXAPINE SUCCINATE
Active Ingredient: LOXAPINE SUCCINATE
Strength: EQ 25MG BASE
Dosage Form/Route: CAPSULE;ORAL
Application: A072206 | Product #001 | TE Code: AB
Applicant: WATSON LABORATORIES INC
Approved: Jun 15, 1988 | RLD: No | RS: Yes | Type: RX